FAERS Safety Report 20965252 (Version 1)
Quarter: 2022Q2

REPORT INFORMATION
  Report Type: Spontaneous
  Country: US (occurrence: None)
  Receive Date: 20220616
  Receipt Date: 20220616
  Transmission Date: 20220721
  Serious: Yes (Hospitalization)
  Sender: FDA-Public Use
  Company Number: US-ROCHE-3116801

PATIENT
  Sex: Female

DRUGS (18)
  1. XOLAIR [Suspect]
     Active Substance: OMALIZUMAB
     Indication: Asthma
     Dosage: ADMINISTER 300 MG(2 SYRINGES)SUBCUTANEOUSLY EVERY 28 DAYS
     Route: 058
     Dates: start: 20210526
  2. XOLAIR [Suspect]
     Active Substance: OMALIZUMAB
  3. XOLAIR [Suspect]
     Active Substance: OMALIZUMAB
  4. LEVAQUIN [Concomitant]
     Active Substance: LEVOFLOXACIN
  5. AVONEX [Concomitant]
     Active Substance: INTERFERON BETA-1A
     Dosage: AVONEX PEN AJK 30MCG/0.5M
  6. DULOXETINE HYDROCHLORIDE [Concomitant]
     Active Substance: DULOXETINE HYDROCHLORIDE
  7. GABAPENTIN [Concomitant]
     Active Substance: GABAPENTIN
  8. HYDROXYZINE [Concomitant]
     Active Substance: HYDROXYZINE HYDROCHLORIDE
  9. PROAIR HFA [Concomitant]
     Active Substance: ALBUTEROL SULFATE
     Dosage: PROAIR HFA AER 108
  10. SPIRONOLACTONE [Concomitant]
     Active Substance: SPIRONOLACTONE
  11. SYMBICORT [Concomitant]
     Active Substance: BUDESONIDE\FORMOTEROL FUMARATE DIHYDRATE
     Dosage: SYMBICORT AER 160-4.5 MCG
  12. TRAZODONE HCL [Concomitant]
     Active Substance: TRAZODONE HYDROCHLORIDE
  13. VITAMIN D3 [Concomitant]
     Active Substance: CHOLECALCIFEROL
  14. ZYRTEC [Concomitant]
     Active Substance: CETIRIZINE HYDROCHLORIDE
  15. SINGULAIR [Concomitant]
     Active Substance: MONTELUKAST SODIUM
  16. LEVOTHYROXINE [Concomitant]
     Active Substance: LEVOTHYROXINE
  17. PREDNISONE [Concomitant]
     Active Substance: PREDNISONE
  18. ASPIRIN [Concomitant]
     Active Substance: ASPIRIN

REACTIONS (2)
  - Chronic obstructive pulmonary disease [Unknown]
  - Bronchitis [Unknown]
